FAERS Safety Report 4866811-3 (Version None)
Quarter: 2005Q4

REPORT INFORMATION
  Report Type: 
  Country: None (occurrence: None)
  Receive Date: 20051222
  Receipt Date: 20051207
  Transmission Date: 20060501
  Serious: Yes (Death, Hospitalization)
  Sender: FDA-Public Use
  Company Number: 2005-0009016

PATIENT
  Age: 54 Year
  Sex: Male

DRUGS (3)
  1. VIREAD [Suspect]
     Indication: HIV INFECTION
     Dosage: ORAL
     Route: 048
     Dates: start: 20050520, end: 20050708
  2. EPIVIR [Suspect]
     Indication: HIV INFECTION
     Dosage: ORAL
     Route: 048
     Dates: start: 20050520, end: 20050708
  3. SULFAMETHOXAZOLE/TRIMETHOPRIM (BACTRIM/00086101/) [Concomitant]

REACTIONS (13)
  - BRAIN OEDEMA [None]
  - CREUTZFELDT-JAKOB DISEASE [None]
  - CSF PRESSURE INCREASED [None]
  - DEPRESSED LEVEL OF CONSCIOUSNESS [None]
  - DIFFICULTY IN WALKING [None]
  - DISORIENTATION [None]
  - GERSTMANN'S SYNDROME [None]
  - IMMUNE RECONSTITUTION SYNDROME [None]
  - MEMORY IMPAIRMENT [None]
  - MOVEMENT DISORDER [None]
  - MUSCLE RIGIDITY [None]
  - PROGRESSIVE MULTIFOCAL LEUKOENCEPHALOPATHY [None]
  - RESPIRATORY FAILURE [None]
